FAERS Safety Report 23306756 (Version 1)
Quarter: 2023Q4

REPORT INFORMATION
  Report Type: Spontaneous
  Country: AU (occurrence: AU)
  Receive Date: 20231218
  Receipt Date: 20231218
  Transmission Date: 20240109
  Serious: Yes (Hospitalization, Other)
  Sender: FDA-Public Use
  Company Number: AU-GENERIC HEALTH PTY. LTD.-2023-11310

PATIENT
  Age: 34 Year
  Sex: Male

DRUGS (5)
  1. VORICONAZOLE [Suspect]
     Active Substance: VORICONAZOLE
     Indication: Fungal infection
     Dosage: 6 MILLIGRAM/KILOGRAM, BID (FOR 2 DOSES)
     Route: 048
  2. VORICONAZOLE [Suspect]
     Active Substance: VORICONAZOLE
     Dosage: 4 MILLIGRAM/KILOGRAM, BID
     Route: 048
  3. CLOZAPINE [Suspect]
     Active Substance: CLOZAPINE
     Indication: Schizophrenia
     Dosage: UNK
     Route: 065
  4. PALIPERIDONE [Interacting]
     Active Substance: PALIPERIDONE
     Indication: Schizophrenia
     Dosage: 3 MILLIGRAM, QD (EXTENDED RELEASE)
     Route: 065
  5. PALIPERIDONE [Interacting]
     Active Substance: PALIPERIDONE
     Dosage: 9 MILLIGRAM, QD (EXTENDED RELEASE)
     Route: 065

REACTIONS (5)
  - Extrapyramidal disorder [Recovered/Resolved]
  - Drug interaction [Unknown]
  - Febrile neutropenia [Recovering/Resolving]
  - Antipsychotic drug level increased [Recovered/Resolved]
  - Liver function test abnormal [Recovered/Resolved]
